FAERS Safety Report 10442263 (Version 1)
Quarter: 2014Q2

REPORT INFORMATION
  Report Type: Spontaneous
  Country: US (occurrence: None)
  Receive Date: 20140616
  Receipt Date: 20140616
  Transmission Date: 20141212
  Serious: Yes (Hospitalization, Other)
  Sender: FDA-Public Use
  Company Number: 2012-003325

PATIENT
  Age: 70 Year
  Sex: Male
  Weight: 90.7 kg

DRUGS (25)
  1. ACTONEL (RISEDRONATE SODIUM) TABLET, 35MG [Suspect]
     Indication: OSTEOPOROSIS
     Route: 048
     Dates: start: 2004, end: 200612
  2. ACTONEL (RISEDRONATE SODIUM) TABLET, 35MG [Suspect]
     Indication: OSTEOPENIA
     Route: 048
     Dates: start: 2004, end: 200612
  3. ACTONEL (RISEDRONATE SODIUM) TABLET, 35MG [Suspect]
     Indication: OSTEOPOROSIS PROPHYLAXIS
     Route: 048
     Dates: start: 2004, end: 200612
  4. ALENDRONATE(ALENDRONATE SODIUM) [Suspect]
     Indication: OSTEOPOROSIS
     Route: 048
     Dates: start: 200803, end: 201008
  5. ALENDRONATE(ALENDRONATE SODIUM) [Suspect]
     Indication: OSTEOPENIA
     Route: 048
     Dates: start: 200803, end: 201008
  6. ALENDRONATE(ALENDRONATE SODIUM) [Suspect]
     Indication: OSTEOPOROSIS PROPHYLAXIS
     Route: 048
     Dates: start: 200803, end: 201008
  7. FOSAMAX [Suspect]
     Indication: OSTEOPOROSIS
     Route: 048
     Dates: start: 200612, end: 2010
  8. FOSAMAX [Suspect]
     Indication: OSTEOPENIA
     Route: 048
     Dates: start: 200612, end: 2010
  9. FOSAMAX [Suspect]
     Indication: OSTEOPOROSIS PROPHYLAXIS
     Route: 048
     Dates: start: 200612, end: 2010
  10. ANDROSGEL (TESTOSTERONE) [Concomitant]
  11. VIAGRA (SILDENAFIL CITRATE) [Concomitant]
  12. LANOXIN (DIGOXIN) [Concomitant]
  13. COREG (CARVEDILOL) [Concomitant]
  14. WARFARIN (WARFARIN) [Concomitant]
  15. LIPITOR (ATORVASTATIN CALCIUM) [Concomitant]
  16. PAROXETINE (PAROXETINE) [Concomitant]
  17. AMBIEN (ZOLPIDEM TARTRATE) [Concomitant]
  18. OXYCODONE WITH APAP (OXYCODONE HYDROCHLORIDE, PARACETAMOL) [Concomitant]
  19. PENICILLIN-VK (PHENOXYMETHYLPENICILLIN POTASSIUM) [Concomitant]
  20. CLINDAMYCIN (CLINDAMYCIN) [Concomitant]
  21. CHLORHEXIDINE (CHLORHEXIDINE) [Concomitant]
  22. ACIDOPHILUS (LACTOBACILLUS ACIDOPHILUS) [Concomitant]
  23. CITRUCEL (METHYLCELLULOSE) [Concomitant]
  24. MULTIVITAMINS (ASCORBIC ACID, ERGOCALCIFEROL, FOLIC ACID, NICOTINAMIDE, PANTHENOL, [Concomitant]
  25. RETINOL, RIBOFLAVIN, THIAMINE HYDROCHLORIDE) [Concomitant]

REACTIONS (5)
  - Femur fracture [None]
  - Comminuted fracture [None]
  - Fall [None]
  - Stress fracture [None]
  - Low turnover osteopathy [None]
